FAERS Safety Report 7365899-8 (Version None)
Quarter: 2011Q1

REPORT INFORMATION
  Report Type: 
  Country: None (occurrence: None)
  Receive Date: 20110322
  Receipt Date: 20110310
  Transmission Date: 20110831
  Serious: Yes (Other)
  Sender: FDA-Public Use
  Company Number: BR-AMGEN-BRASP2011010937

PATIENT
  Age: 72 Year
  Sex: Female
  Weight: 65 kg

DRUGS (9)
  1. IBUPROFEN [Concomitant]
     Indication: PAIN
     Dosage: STRENGTH 300MG, DOSE NOT SPECIFIED, 3X/DAY AS NEEDED
     Dates: start: 20080101
  2. CALCIUM CARBONATE W/COLECALCIFEROL [Concomitant]
     Indication: BONE DISORDER
     Dosage: STRENGTH 1250 MG/600 IU, UNSPECIFIED DOSE, 2X/DAY
     Dates: start: 20080101
  3. BONALEN                            /01220302/ [Concomitant]
     Indication: PRODUCT USED FOR UNKNOWN INDICATION
     Dosage: STRENGTH 70 MG, DOSE NOT SPECIFIED, WEEKLY
     Dates: start: 20080101
  4. RIVOTRIL [Concomitant]
     Indication: SLEEP DISORDER
     Dosage: 3 MG, 1X/DAY
     Dates: start: 19810101
  5. PANTOPRAZOLE [Concomitant]
     Indication: PROPHYLAXIS AGAINST GASTROINTESTINAL ULCER
     Dosage: STRENGTH 20 MG, UNSPECIFIED DOSE, 1X/DAY
     Dates: start: 20080101
  6. ENBREL [Suspect]
     Indication: RHEUMATOID ARTHRITIS
     Dosage: STRENGTH 25MG, DOSE NOT SPECIFIED, 2X/WK
     Route: 058
     Dates: start: 20091201
  7. METHOTREXATE [Concomitant]
     Indication: RHEUMATOID ARTHRITIS
     Dosage: 17 MG, WEEKLY
     Dates: start: 20080101
  8. ENDOFOLIN                          /00024201/ [Concomitant]
     Indication: GASTRIC DISORDER
     Dosage: 2 MG TABLETS, DOSE UNKNOWN, 1X/DAY
     Dates: start: 20080101
  9. CORTICORTEN [Suspect]
     Indication: RHEUMATOID ARTHRITIS
     Dosage: STRENGTH 5MG, UNSPECIFIED DOSE, 2X/DAY
     Dates: start: 20080101

REACTIONS (12)
  - UNEVALUABLE EVENT [None]
  - FALL [None]
  - BALANCE DISORDER [None]
  - PAIN [None]
  - DIZZINESS [None]
  - REFLUX OESOPHAGITIS [None]
  - FEELING ABNORMAL [None]
  - WEIGHT INCREASED [None]
  - PRODUCTIVE COUGH [None]
  - FEAR [None]
  - BLOOD CHOLESTEROL INCREASED [None]
  - DRUG EFFECT DECREASED [None]
